FAERS Safety Report 6630940-4 (Version None)
Quarter: 2010Q1

REPORT INFORMATION
  Report Type: 
  Country: None (occurrence: None)
  Receive Date: 20100309
  Receipt Date: 20100304
  Transmission Date: 20100710
  Serious: Yes (Hospitalization)
  Sender: FDA-Public Use
  Company Number: ALL1-2010-01176

PATIENT
  Age: 74 Year
  Sex: Female
  Weight: 80.3 kg

DRUGS (6)
  1. FOSRENOL [Suspect]
     Indication: HYPERPHOSPHATAEMIA
     Dosage: OTHER (1/2 OF A 1000MG WITH NORMAL MEALS), ORAL 1000 MG, OTHER (WITH BIG MEALS), ORAL
     Route: 048
     Dates: start: 20090101
  2. CLONIDINE [Concomitant]
  3. METOPROLOL (METOPROLOL) [Concomitant]
  4. NORVASC [Concomitant]
  5. AMARYL [Concomitant]
  6. LIPITOR [Concomitant]

REACTIONS (2)
  - BACK PAIN [None]
  - DYSPONESIS [None]
